FAERS Safety Report 9427455 (Version 1)
Quarter: 2013Q3

REPORT INFORMATION
  Report Type: Spontaneous
  Country: US (occurrence: None)
  Receive Date: 20130729
  Receipt Date: 20130729
  Transmission Date: 20140515
  Serious: Yes (Disabling)
  Sender: FDA-Public Use
  Company Number: None

PATIENT
  Age: 56 Year
  Sex: Female
  Weight: 81.65 kg

DRUGS (8)
  1. ATELVIA [Suspect]
     Indication: OSTEOPOROSIS
     Route: 048
     Dates: start: 20130601, end: 20130705
  2. ZYRTEC 10MG [Concomitant]
  3. RAMIPRIL 10MG [Concomitant]
  4. FAMVIC 500MG [Concomitant]
  5. METFORMIN HCL 500MG [Concomitant]
  6. VIT. D [Concomitant]
  7. VIT. B DROPS [Concomitant]
  8. CALCIUM [Concomitant]

REACTIONS (4)
  - Bone pain [None]
  - Arthralgia [None]
  - Arthralgia [None]
  - Bone disorder [None]
